FAERS Safety Report 8766106 (Version 4)
Quarter: 2013Q3

REPORT INFORMATION
  Report Type: Report from Study
  Country: US (occurrence: US)
  Receive Date: 20120904
  Receipt Date: 20130704
  Transmission Date: 20140515
  Serious: Yes (Hospitalization)
  Sender: FDA-Public Use
  Company Number: US-MERCK-1208USA005550

PATIENT
  Age: 63 Year
  Sex: Female
  Weight: 75.56 kg

DRUGS (19)
  1. RIDAFOROLIMUS [Suspect]
     Indication: CARCINOID TUMOUR OF THE SMALL BOWEL
     Dosage: 20 MG, QD X 5 DAYS Q WK
     Route: 048
     Dates: start: 20120730, end: 20120807
  2. RIDAFOROLIMUS [Suspect]
     Dosage: UNK
     Route: 048
     Dates: start: 201208, end: 20120828
  3. VORINOSTAT [Suspect]
     Indication: CARCINOID TUMOUR OF THE SMALL BOWEL
     Dosage: 200 MG, BID X 3 DAYS QW
     Route: 048
     Dates: start: 20120730, end: 20120807
  4. VORINOSTAT [Suspect]
     Dosage: UNK
     Route: 048
     Dates: start: 201208, end: 20120828
  5. OCTREOTIDE [Concomitant]
  6. SYNTHROID [Concomitant]
  7. HYDROCHLOROTHIAZIDE [Concomitant]
  8. IMODIUM [Concomitant]
  9. LOMOTIL [Concomitant]
  10. TRIAMTERENE [Concomitant]
  11. CALCIUM (UNSPECIFIED) (+) VITAMIN D (UNSPECIFIED) [Concomitant]
  12. ASPIRIN [Concomitant]
  13. OMEGA-3 MARINE TRIGLYCERIDES [Concomitant]
  14. VITAMINS (UNSPECIFIED) [Concomitant]
  15. LASIX (FUROSEMIDE) [Concomitant]
  16. HYDROCODONE [Concomitant]
  17. LOVENOX [Concomitant]
  18. PRILOSEC [Concomitant]
  19. NIACIN [Concomitant]

REACTIONS (4)
  - Diarrhoea [Recovering/Resolving]
  - Vomiting [Recovering/Resolving]
  - Abdominal pain [Unknown]
  - Embolism [Unknown]
